FAERS Safety Report 15847572 (Version 2)
Quarter: 2025Q4

REPORT INFORMATION
  Report Type: Spontaneous
  Country: EU (occurrence: None)
  Receive Date: 20190121
  Receipt Date: 20251120
  Transmission Date: 20260118
  Serious: Yes (Other)
  Sender: AUROBINDO
  Company Number: EU-AUROBINDO-AUR-APL-2019-001926

PATIENT
  Age: 79 Year
  Sex: Female

DRUGS (5)
  1. OLMESARTAN [Suspect]
     Active Substance: OLMESARTAN
     Indication: Product used for unknown indication
     Dosage: 20 MILLIGRAM
     Route: 065
  2. LANSOPRAZOLE [Suspect]
     Active Substance: LANSOPRAZOLE
     Indication: Product used for unknown indication
     Dosage: 30 MILLIGRAM
     Route: 065
  3. FUROSEMIDE [Suspect]
     Active Substance: FUROSEMIDE
     Indication: Product used for unknown indication
     Dosage: 40 MILLIGRAM
     Route: 065
  4. ISOSORBIDE MONONITRATE [Suspect]
     Active Substance: ISOSORBIDE MONONITRATE
     Indication: Product used for unknown indication
     Dosage: UNK
     Route: 065
  5. ETODOLAC [Suspect]
     Active Substance: ETODOLAC
     Indication: Product used for unknown indication
     Dosage: 600 MILLIGRAM
     Route: 065

REACTIONS (3)
  - Colitis microscopic [Unknown]
  - Diarrhoea [Recovering/Resolving]
  - Abdominal pain [Recovering/Resolving]
